FAERS Safety Report 18917186 (Version 1)
Quarter: 2021Q1

REPORT INFORMATION
  Report Type: Spontaneous
  Country: BR (occurrence: BR)
  Receive Date: 20210219
  Receipt Date: 20210219
  Transmission Date: 20210420
  Serious: Yes (Other)
  Sender: FDA-Public Use
  Company Number: BR-009507513-1809BRA002410

PATIENT
  Age: 81 Year
  Sex: Female
  Weight: 46 kg

DRUGS (3)
  1. JANUMET XR [Suspect]
     Active Substance: METFORMIN HYDROCHLORIDE\SITAGLIPTIN PHOSPHATE
     Indication: TYPE 2 DIABETES MELLITUS
     Dosage: UNK
     Route: 048
  2. JANUMET XR [Suspect]
     Active Substance: METFORMIN HYDROCHLORIDE\SITAGLIPTIN PHOSPHATE
     Indication: TYPE 2 DIABETES MELLITUS
     Dosage: 1 TABLET A DAY AFTER LUNCH, OR, WHEN SHE LEAVES HOME, 1 TABLET AFTER DINNER INSTEAD
     Route: 048
     Dates: start: 2013
  3. ADDERA D3 [Concomitant]
     Active Substance: CHOLECALCIFEROL
     Indication: OSTEOPOROSIS PROPHYLAXIS
     Dosage: 1 TABLET PER WEEK

REACTIONS (28)
  - Fall [Not Recovered/Not Resolved]
  - Gait disturbance [Unknown]
  - Neoplasm [Unknown]
  - Blood pressure abnormal [Unknown]
  - Knee operation [Unknown]
  - Hypertension [Unknown]
  - Adverse event [Unknown]
  - Inflammation [Unknown]
  - Blood cholesterol increased [Recovered/Resolved]
  - Nasal injury [Unknown]
  - Contusion [Not Recovered/Not Resolved]
  - Product selection error [Unknown]
  - Arrhythmia [Unknown]
  - Basal cell carcinoma [Unknown]
  - Osteopenia [Not Recovered/Not Resolved]
  - Onychoclasis [Unknown]
  - Wrong technique in product usage process [Unknown]
  - Joint swelling [Not Recovered/Not Resolved]
  - Adverse event [Unknown]
  - Diarrhoea [Unknown]
  - Product dispensing error [Unknown]
  - Osteoporosis [Not Recovered/Not Resolved]
  - Balance disorder [Unknown]
  - Breast neoplasm [Unknown]
  - Adverse event [Unknown]
  - Arthralgia [Not Recovered/Not Resolved]
  - Arthralgia [Not Recovered/Not Resolved]
  - Blood glucose abnormal [Unknown]

NARRATIVE: CASE EVENT DATE: 2014
